FAERS Safety Report 4769794-X (Version None)
Quarter: 2005Q3

REPORT INFORMATION
  Report Type: 
  Country: None (occurrence: None)
  Receive Date: 20050915
  Receipt Date: 20050909
  Transmission Date: 20060218
  Serious: Yes (Hospitalization)
  Sender: FDA-Public Use
  Company Number: 200512055DE

PATIENT
  Age: 63 Year
  Sex: Female

DRUGS (5)
  1. DOCETAXEL [Suspect]
     Route: 042
     Dates: start: 20050823, end: 20050823
  2. DOXORUBICIN [Suspect]
     Route: 042
     Dates: start: 20050823, end: 20050823
  3. ENDOXAN [Suspect]
     Route: 042
     Dates: start: 20050823, end: 20050823
  4. ANTIEMETICS AND ANTINAUSEANTS [Concomitant]
  5. APROVEL [Concomitant]
     Indication: TINNITUS

REACTIONS (2)
  - TETANY [None]
  - VOMITING [None]
